FAERS Safety Report 5192331-5 (Version None)
Quarter: 2006Q4

REPORT INFORMATION
  Report Type: 
  Country: None (occurrence: None)
  Receive Date: 20061220
  Receipt Date: 20061208
  Transmission Date: 20070319
  Serious: No
  Sender: FDA-Public Use
  Company Number: 233710

PATIENT
  Age: 9 Year
  Sex: Female
  Weight: 27.9 kg

DRUGS (5)
  1. NUTROPIN AQ [Suspect]
     Indication: GROWTH HORMONE DEFICIENCY
     Dosage: 1.3 MG, 7/WEEK, SUBCUTANEOUS
     Route: 058
     Dates: start: 19991101, end: 20001201
  2. NUTROPIN AQ [Suspect]
     Indication: GROWTH HORMONE DEFICIENCY
     Dosage: 1.3 MG, 7/WEEK, SUBCUTANEOUS
     Route: 058
     Dates: start: 20050401, end: 20061207
  3. CORTEF [Concomitant]
  4. SYNTHROID [Concomitant]
  5. DDAVP (DESMOPRESSIN ACETATE) [Concomitant]

REACTIONS (3)
  - HYPOPITUITARISM [None]
  - PHOBIA [None]
  - PITUITARY TUMOUR BENIGN [None]
